FAERS Safety Report 22370770 (Version 3)
Quarter: 2023Q2

REPORT INFORMATION
  Report Type: Spontaneous
  Country: US (occurrence: US)
  Receive Date: 20230526
  Receipt Date: 20230606
  Transmission Date: 20230722
  Serious: No
  Sender: FDA-Public Use
  Company Number: US-AMGEN-USASP2023088608

PATIENT
  Age: 69 Year
  Sex: Female

DRUGS (1)
  1. PROLIA [Suspect]
     Active Substance: DENOSUMAB
     Indication: Osteoporosis
     Dosage: 60 MILLIGRAM, Q6MO
     Route: 058
     Dates: start: 202211

REACTIONS (6)
  - Gait inability [Unknown]
  - Feeling abnormal [Unknown]
  - Product storage error [Unknown]
  - Intercepted product administration error [Unknown]
  - Wrong technique in product usage process [Unknown]
  - Tremor [Unknown]

NARRATIVE: CASE EVENT DATE: 20230522
